FAERS Safety Report 25380618 (Version 2)
Quarter: 2025Q2

REPORT INFORMATION
  Report Type: Spontaneous
  Country: GB (occurrence: GB)
  Receive Date: 20250530
  Receipt Date: 20250617
  Transmission Date: 20250717
  Serious: Yes (Other)
  Sender: IPSEN BIOPHARMACEUTICALS, INC.
  Company Number: None

PATIENT
  Age: 26 Year
  Sex: Female
  Weight: 74 kg

DRUGS (8)
  1. ELAFIBRANOR [Suspect]
     Active Substance: ELAFIBRANOR
     Indication: Primary biliary cholangitis
     Dosage: 80MG ONCE A DAY
     Route: 065
     Dates: start: 20241108, end: 20241216
  2. FOLIC ACID [Concomitant]
     Active Substance: FOLIC ACID
     Indication: Blood iron decreased
     Dates: start: 20220901
  3. AMITRIPTYLINE [Concomitant]
     Active Substance: AMITRIPTYLINE
     Indication: Arthralgia
     Dates: start: 20240426
  4. DOXYCYCLINE [Concomitant]
     Active Substance: DOXYCYCLINE
     Indication: Rash
     Dates: start: 20230406
  5. COLESEVELAM [Concomitant]
     Active Substance: COLESEVELAM
     Indication: Pruritus
     Dates: start: 20220707
  6. URSODIOL [Concomitant]
     Active Substance: URSODIOL
     Indication: Primary biliary cholangitis
     Dates: start: 20220707
  7. COD LIVER OIL [Concomitant]
     Active Substance: COD LIVER OIL
     Indication: Arthralgia
     Dates: start: 2024
  8. CHLORPHENIRAMINE MALEATE [Concomitant]
     Active Substance: CHLORPHENIRAMINE MALEATE
     Indication: Pruritus
     Dates: start: 2024

REACTIONS (1)
  - Liver function test abnormal [Not Recovered/Not Resolved]

NARRATIVE: CASE EVENT DATE: 20241216
